FAERS Safety Report 16952217 (Version 1)
Quarter: 2019Q4

REPORT INFORMATION
  Report Type: Spontaneous
  Country: US (occurrence: US)
  Receive Date: 20191022
  Receipt Date: 20191022
  Transmission Date: 20200122
  Serious: No
  Sender: FDA-Public Use
  Company Number: None

PATIENT
  Age: 53 Year

DRUGS (1)
  1. NORTHERA [Suspect]
     Active Substance: DROXIDOPA

REACTIONS (2)
  - Loss of personal independence in daily activities [None]
  - Adverse event [None]
